FAERS Safety Report 4549672-1 (Version None)
Quarter: 2005Q1

REPORT INFORMATION
  Report Type: 
  Country: None (occurrence: None)
  Receive Date: 20050106
  Receipt Date: 20050103
  Transmission Date: 20050727
  Serious: Yes (Hospitalization)
  Sender: FDA-Public Use
  Company Number: FRWYE122219OCT04

PATIENT
  Age: 58 Year
  Sex: Female

DRUGS (5)
  1. EFFEXOR [Suspect]
     Indication: ANOREXIA
     Dosage: 50 MG 4X PER 1DAY
     Route: 048
     Dates: start: 20010921, end: 20040701
  2. EFFEXOR [Suspect]
     Indication: DEPRESSION
     Dosage: 50 MG 4X PER 1DAY
     Route: 048
     Dates: start: 20010921, end: 20040701
  3. EFFEXOR [Suspect]
     Indication: ANOREXIA
     Dosage: 50 MG 4X PER 1DAY
     Route: 048
     Dates: start: 20040101, end: 20041001
  4. EFFEXOR [Suspect]
     Indication: DEPRESSION
     Dosage: 50 MG 4X PER 1DAY
     Route: 048
     Dates: start: 20040101, end: 20041001
  5. PRAZEPAM [Concomitant]

REACTIONS (9)
  - ANOREXIA [None]
  - ANXIETY [None]
  - CHEST DISCOMFORT [None]
  - CONDITION AGGRAVATED [None]
  - DEPRESSION [None]
  - DRUG INEFFECTIVE [None]
  - GENERAL PHYSICAL HEALTH DETERIORATION [None]
  - ILEUS [None]
  - MUSCLE CONTRACTURE [None]
